FAERS Safety Report 20767932 (Version 2)
Quarter: 2022Q2

REPORT INFORMATION
  Report Type: Other
  Country: SE (occurrence: SE)
  Receive Date: 20220429
  Receipt Date: 20220512
  Transmission Date: 20220721
  Serious: Yes (Hospitalization, Other)
  Sender: FDA-Public Use
  Company Number: SE-CELLTRION INC.-2022SE005012

PATIENT

DRUGS (9)
  1. RITUXIMAB [Suspect]
     Active Substance: RITUXIMAB
     Indication: Follicular lymphoma stage IV
     Dosage: 375 MILLIGRAM/SQ. METER, 1/WEEK
     Dates: start: 20220217, end: 20220217
  2. RITUXIMAB [Suspect]
     Active Substance: RITUXIMAB
     Dosage: 375 MILLIGRAM/SQ. METER, 1/WEEK
     Dates: start: 20220224, end: 20220224
  3. LENALIDOMIDE [Suspect]
     Active Substance: LENALIDOMIDE
     Indication: Follicular lymphoma stage IV
     Dosage: 20 MILLIGRAM, QD
     Dates: start: 20220217, end: 20220217
  4. EPCORITAMAB [Suspect]
     Active Substance: EPCORITAMAB
     Indication: Follicular lymphoma stage IV
     Dosage: 0.16 MG (FREQUENCY TEXT: NOT PROVIDED, PRIMING DOS)
     Dates: start: 20220217, end: 20220217
  5. EPCORITAMAB [Suspect]
     Active Substance: EPCORITAMAB
     Dosage: 0.8 MG (FREQUENCY TEXT: NOT PROVIDED)
     Dates: start: 20220224, end: 20220224
  6. EPCORITAMAB [Suspect]
     Active Substance: EPCORITAMAB
     Dosage: 48 MG (FREQUENCY TEXT: NOT PROVIDED)
     Dates: start: 20220303, end: 20220303
  7. ACETAMINOPHEN [Concomitant]
     Active Substance: ACETAMINOPHEN
     Indication: Product used for unknown indication
     Dosage: 1000 MG; FREQUENCY TEXT: NOT PROVIDED
     Dates: start: 20220224, end: 20220224
  8. PREDNISONE [Concomitant]
     Active Substance: PREDNISONE
     Indication: Product used for unknown indication
     Dosage: 100 MG; FREQUENCY TEXT: NOT PROVIDED
     Dates: start: 20220224, end: 20220227
  9. DESLORATADINE [Concomitant]
     Active Substance: DESLORATADINE
     Indication: Product used for unknown indication
     Dosage: UNK (FREQUENCY TEXT: NOT PROVIDED)
     Dates: start: 20220224, end: 20220224

REACTIONS (1)
  - Cytokine release syndrome [Not Recovered/Not Resolved]

NARRATIVE: CASE EVENT DATE: 20220304
